FAERS Safety Report 23629513 (Version 4)
Quarter: 2024Q2

REPORT INFORMATION
  Report Type: Spontaneous
  Country: JP (occurrence: JP)
  Receive Date: 20240314
  Receipt Date: 20240520
  Transmission Date: 20240716
  Serious: Yes (Other)
  Sender: FDA-Public Use
  Company Number: JP-JNJFOC-20240332564

PATIENT
  Age: 63 Year
  Sex: Male
  Weight: 52.4 kg

DRUGS (7)
  1. TRABECTEDIN [Suspect]
     Active Substance: TRABECTEDIN
     Indication: Undifferentiated sarcoma
     Route: 041
     Dates: start: 20240208
  2. TRABECTEDIN [Suspect]
     Active Substance: TRABECTEDIN
     Route: 041
     Dates: start: 20240403
  3. NIFEDIPINE [Concomitant]
     Active Substance: NIFEDIPINE
  4. AZELNIDIPINE [Concomitant]
     Active Substance: AZELNIDIPINE
  5. DIMEMORFAN PHOSPHATE [Concomitant]
     Active Substance: DIMEMORFAN PHOSPHATE
     Dates: start: 202402
  6. CARBOCYSTEINE [Concomitant]
     Active Substance: CARBOCYSTEINE
  7. VONOPRAZAN FUMARATE [Concomitant]
     Active Substance: VONOPRAZAN FUMARATE

REACTIONS (8)
  - Cerebellar haemorrhage [Unknown]
  - Pancytopenia [Recovered/Resolved]
  - Anaemia [Recovered/Resolved]
  - Overdose [Unknown]
  - Decreased appetite [Unknown]
  - Nausea [Unknown]
  - Malnutrition [Unknown]
  - Hypoalbuminaemia [Not Recovered/Not Resolved]

NARRATIVE: CASE EVENT DATE: 20240208
